FAERS Safety Report 9155477 (Version 3)
Quarter: 2013Q2

REPORT INFORMATION
  Report Type: Report from Study
  Country: DE (occurrence: DE)
  Receive Date: 20130311
  Receipt Date: 20130430
  Transmission Date: 20140414
  Serious: Yes (Death, Other)
  Sender: FDA-Public Use
  Company Number: DE-ABBOTT-13P-062-1060428-00

PATIENT
  Sex: Male
  Weight: 74.2 kg

DRUGS (1)
  1. KALETRA [Suspect]
     Indication: HIV INFECTION
     Dosage: 2X2
     Dates: start: 20110818, end: 20120712

REACTIONS (5)
  - Sepsis [Fatal]
  - Pneumonia fungal [Fatal]
  - Hyponatraemia [Fatal]
  - Cytomegalovirus infection [Fatal]
  - Decubitus ulcer [Fatal]
